FAERS Safety Report 5889700-4 (Version None)
Quarter: 2008Q3

REPORT INFORMATION
  Report Type: 
  Country: None (occurrence: None)
  Receive Date: 20080919
  Receipt Date: 20080911
  Transmission Date: 20090109
  Serious: Yes (Hospitalization)
  Sender: FDA-Public Use
  Company Number: JP-JNJFOC-20080801422

PATIENT
  Sex: Male
  Weight: 28 kg

DRUGS (10)
  1. CONCERTA [Suspect]
     Route: 048
  2. CONCERTA [Suspect]
     Indication: ASPERGER'S DISORDER
     Route: 048
  3. RITALIN [Suspect]
     Indication: ATTENTION DEFICIT/HYPERACTIVITY DISORDER
     Route: 065
  4. TIPEPIDINE HIBENZATE [Concomitant]
     Indication: BRONCHITIS
     Route: 048
  5. SODIUM PICOSULFATE [Concomitant]
     Indication: CONSTIPATION
     Route: 048
  6. MAGNESIUM OXIDE [Concomitant]
     Indication: CONSTIPATION
     Route: 048
  7. UNKNOWN DRUG [Concomitant]
     Indication: CONSTIPATION
     Route: 048
  8. TEPRENONE [Concomitant]
     Indication: GASTRITIS
     Route: 048
  9. CARBOCISTEINE [Concomitant]
     Indication: BRONCHITIS
     Route: 048
  10. CEFDITOREN PIVOXIL [Concomitant]
     Indication: BRONCHITIS
     Route: 048

REACTIONS (1)
  - INTESTINAL OBSTRUCTION [None]
